FAERS Safety Report 7707939-X (Version None)
Quarter: 2011Q3

REPORT INFORMATION
  Report Type: 
  Country: None (occurrence: None)
  Receive Date: 20110824
  Receipt Date: 20110815
  Transmission Date: 20111222
  Serious: Yes (Other)
  Sender: FDA-Public Use
  Company Number: GB-ASTRAZENECA-2011SE39985

PATIENT
  Age: 88 Year
  Sex: Male

DRUGS (10)
  1. CALCIUM CARBONATE [Concomitant]
     Dosage: 1.5 GM/10MG
  2. SIMVASTATIN [Concomitant]
  3. ASPIRIN [Concomitant]
  4. OMEPRAZOLE [Concomitant]
  5. ISMN [Concomitant]
  6. VESICARE [Concomitant]
  7. FURSEMIDE [Concomitant]
  8. CANDESARTAN CILEXETIL [Concomitant]
     Route: 048
  9. CASODEX [Suspect]
     Route: 048
     Dates: start: 20020101, end: 20110201
  10. SOHTENACIN [Concomitant]

REACTIONS (1)
  - HY'S LAW CASE [None]
